FAERS Safety Report 7359188-5 (Version None)
Quarter: 2011Q1

REPORT INFORMATION
  Report Type: 
  Country: None (occurrence: None)
  Receive Date: 20110317
  Receipt Date: 20110308
  Transmission Date: 20110831
  Serious: Yes (Other)
  Sender: FDA-Public Use
  Company Number: US-AMGEN-USASP2011009365

PATIENT
  Age: 81 Year
  Sex: Male
  Weight: 88.435 kg

DRUGS (8)
  1. ENBREL [Suspect]
     Indication: PSORIASIS
     Dosage: 50 MG, 2 TIMES/WK
     Dates: start: 20060821, end: 20090901
  2. ENBREL [Suspect]
     Dosage: 50 MG, 2 TIMES/WK
     Dates: start: 20101005
  3. ZYRTEC [Concomitant]
     Dosage: UNK
     Dates: start: 20101005
  4. LOCOID                             /00028601/ [Concomitant]
     Dosage: UNK
     Dates: start: 20110217
  5. ORACEA [Concomitant]
     Dosage: UNK
     Dates: start: 20110217
  6. VECTICAL [Concomitant]
     Dosage: UNK
     Dates: start: 20100930
  7. CLOBEX                             /00337102/ [Concomitant]
     Dosage: UNK
     Dates: start: 20110217
  8. NEXIUM [Concomitant]
     Dosage: UNK
     Dates: start: 20021230

REACTIONS (6)
  - LACRIMATION INCREASED [None]
  - CRYING [None]
  - DYSPEPSIA [None]
  - ROSACEA [None]
  - HAEMORRHAGIC DIATHESIS [None]
  - OCULAR HYPERAEMIA [None]
